FAERS Safety Report 4730033-7 (Version None)
Quarter: 2005Q3

REPORT INFORMATION
  Report Type: 
  Country: None (occurrence: None)
  Receive Date: 20050728
  Receipt Date: 20050718
  Transmission Date: 20060218
  Serious: No
  Sender: FDA-Public Use
  Company Number: 05H-163-0301140-00

PATIENT
  Age: 58 Year
  Sex: Female

DRUGS (10)
  1. MORPHINE SULFATE [Suspect]
     Indication: PAIN MANAGEMENT
     Dosage: INTRAVENOUS; SEE IMAGE
     Route: 042
  2. FENTANYL (FENTANTL) [Concomitant]
  3. MORPHINE [Concomitant]
  4. FAMOTIDINE [Concomitant]
  5. MIRTAZAPINE [Concomitant]
  6. EZOMEPRAZOLE [Concomitant]
  7. HALOPERIDOL [Concomitant]
  8. ENEMA (ENEMAS) [Concomitant]
  9. OCTREOTIDE ACETATE [Concomitant]
  10. OLANZAPINE [Concomitant]

REACTIONS (4)
  - DELIRIUM [None]
  - HALLUCINATION, VISUAL [None]
  - MYOCLONUS [None]
  - NEUROTOXICITY [None]
